FAERS Safety Report 10646410 (Version 1)
Quarter: 2014Q4

REPORT INFORMATION
  Report Type: Spontaneous
  Country: HR (occurrence: HR)
  Receive Date: 20141211
  Receipt Date: 20141211
  Transmission Date: 20150529
  Serious: Yes (Life-Threatening)
  Sender: FDA-Public Use
  Company Number: HR-PFIZER INC-2014338378

PATIENT
  Age: 7 Year
  Sex: Male

DRUGS (4)
  1. SINERSUL [Concomitant]
     Active Substance: SULFAMETHOXAZOLE\TRIMETHOPRIM
     Indication: PROPHYLAXIS
     Dosage: 720 MG, DAILY
     Route: 048
  2. RANITIDINE [Concomitant]
     Active Substance: RANITIDINE\RANITIDINE HYDROCHLORIDE
     Dosage: 25 MG, DAILY
     Route: 041
  3. ABELCET [Concomitant]
     Active Substance: AMPHOTERICIN B\DIMYRISTOYLPHOSPHATIDYLCHOLINE, DL-\DIMYRISTOYLPHOSPHATIDYLGLYCEROL, DL-
     Indication: SEPSIS
     Dosage: 150 MG, DAILY
     Route: 041
     Dates: start: 20141023
  4. VORICONAZOLE. [Suspect]
     Active Substance: VORICONAZOLE
     Indication: SEPSIS
     Dosage: 120 MG, 2X/DAY
     Route: 041
     Dates: start: 20141028, end: 20141103

REACTIONS (2)
  - Cardio-respiratory arrest [Recovering/Resolving]
  - Ventricular tachycardia [Recovering/Resolving]

NARRATIVE: CASE EVENT DATE: 20141103
